FAERS Safety Report 9370521 (Version 2)
Quarter: 2013Q3

REPORT INFORMATION
  Report Type: Report from Study
  Country: CA (occurrence: CA)
  Receive Date: 20130626
  Receipt Date: 20130703
  Transmission Date: 20140515
  Serious: Yes (Other)
  Sender: FDA-Public Use
  Company Number: CA-ABBOTT-13P-028-1108114-00

PATIENT
  Age: 69 Year
  Sex: Female
  Weight: 75.82 kg

DRUGS (4)
  1. HUMIRA [Suspect]
     Indication: RHEUMATOID ARTHRITIS
     Route: 058
     Dates: start: 20120522
  2. PREDNISONE [Suspect]
     Indication: RHEUMATOID ARTHRITIS
  3. SPIRIVA [Concomitant]
     Indication: EMPHYSEMA
     Route: 055
  4. VALFARTAN GENERIC [Concomitant]
     Indication: HYPERTENSION
     Route: 048

REACTIONS (3)
  - Joint instability [Not Recovered/Not Resolved]
  - Osteonecrosis [Not Recovered/Not Resolved]
  - Arthralgia [Not Recovered/Not Resolved]
